FAERS Safety Report 6201388-1 (Version None)
Quarter: 2009Q2

REPORT INFORMATION
  Report Type: 
  Country: None (occurrence: None)
  Receive Date: 20090526
  Receipt Date: 20090519
  Transmission Date: 20091009
  Serious: Yes (Life-Threatening, Hospitalization, Other)
  Sender: FDA-Public Use
  Company Number: PHHY2009GB06439

PATIENT
  Sex: Male

DRUGS (9)
  1. CLOZARIL [Suspect]
     Indication: SCHIZOPHRENIA
     Dosage: 600 MG DAILY
     Route: 048
     Dates: start: 20031202
  2. CLOZARIL [Suspect]
     Dosage: WEEK'S SUPPLY OF MEDICATION
     Route: 048
     Dates: start: 20090217
  3. CLOZARIL [Suspect]
     Dosage: UNK
     Route: 048
  4. CLOMIPRAMINE HCL [Suspect]
     Dosage: 200 MG ON
     Route: 048
     Dates: start: 20090217
  5. HYOSCINE [Suspect]
     Dosage: UNK
     Dates: start: 20090217
  6. METFORMIN HCL [Suspect]
     Indication: TYPE 2 DIABETES MELLITUS
     Dosage: 500 MG, TID
     Route: 048
     Dates: start: 20090217
  7. SIMVASTATIN [Suspect]
     Indication: BLOOD CHOLESTEROL INCREASED
     Dosage: 40 MG, QD
     Route: 048
     Dates: start: 20090217
  8. LISINOPRIL [Suspect]
     Indication: HYPERTENSION
     Dosage: 5 MG, QD
     Route: 048
     Dates: start: 20090217
  9. OMEPRAZOLE [Suspect]
     Dosage: UNK
     Dates: start: 20090217

REACTIONS (4)
  - AGITATION [None]
  - GLASGOW COMA SCALE ABNORMAL [None]
  - MECHANICAL VENTILATION [None]
  - OVERDOSE [None]
